FAERS Safety Report 5923556-6 (Version None)
Quarter: 2008Q4

REPORT INFORMATION
  Report Type: 
  Country: None (occurrence: None)
  Receive Date: 20081020
  Receipt Date: 20081009
  Transmission Date: 20090506
  Serious: Yes (Death, Life-Threatening, Hospitalization)
  Sender: FDA-Public Use
  Company Number: AU-JNJFOC-20080901676

PATIENT
  Sex: Male

DRUGS (4)
  1. REMICADE [Suspect]
     Dosage: 4TH INFUSION OF THE SECOND INDUCTION OF THERAPY
     Route: 042
  2. REMICADE [Suspect]
     Dosage: SECOND INDUCTION INITIATED
     Route: 042
  3. REMICADE [Suspect]
     Indication: PSORIASIS
     Dosage: 5 INFUSIONS
     Route: 042
  4. CYCLOSPORINE [Concomitant]

REACTIONS (5)
  - CHILLS [None]
  - DEATH [None]
  - HYPERHIDROSIS [None]
  - INFUSION RELATED REACTION [None]
  - SEPSIS [None]
